FAERS Safety Report 5003232-7 (Version None)
Quarter: 2006Q2

REPORT INFORMATION
  Report Type: 
  Country: None (occurrence: None)
  Receive Date: 20060512
  Receipt Date: 20060426
  Transmission Date: 20061013
  Serious: Yes (Other)
  Sender: FDA-Public Use
  Company Number: 2006058197

PATIENT
  Age: 66 Year
  Sex: Female
  Weight: 78.9259 kg

DRUGS (1)
  1. BEXTRA [Suspect]
     Indication: RHEUMATOID ARTHRITIS
     Dosage: 10 MG (10 MG, 1 IN 1 D)
     Dates: start: 20020520, end: 20030701

REACTIONS (5)
  - AORTIC VALVE DISEASE [None]
  - ARRHYTHMIA [None]
  - ASTHENIA [None]
  - DECREASED ACTIVITY [None]
  - MYOCARDIAL INFARCTION [None]
